FAERS Safety Report 14950040 (Version 2)
Quarter: 2018Q2

REPORT INFORMATION
  Report Type: Report from Study
  Country: CO (occurrence: CO)
  Receive Date: 20180530
  Receipt Date: 20180601
  Transmission Date: 20180711
  Serious: Yes (Death, Hospitalization)
  Sender: FDA-Public Use
  Company Number: CO-BIOGEN-2018BI00587032

PATIENT
  Age: 7 Month
  Sex: Female
  Weight: 9 kg

DRUGS (3)
  1. SPINRAZA [Suspect]
     Active Substance: NUSINERSEN
     Indication: SPINAL MUSCULAR ATROPHY
     Dosage: 13 MAR 2018, 27 MAR 2018, 10 APR 2018, 10 MAY 2018
     Route: 065
     Dates: start: 20180313, end: 20180510
  2. DIFENHYDRAMINE [Concomitant]
     Indication: PRODUCT USED FOR UNKNOWN INDICATION
     Route: 065
  3. ACETOMINOPHEN [Concomitant]
     Indication: PRODUCT USED FOR UNKNOWN INDICATION
     Route: 065

REACTIONS (3)
  - Respiratory arrest [Recovered/Resolved]
  - Encephalitis [Fatal]
  - Atelectasis [Recovered/Resolved]

NARRATIVE: CASE EVENT DATE: 20180413
